FAERS Safety Report 11746169 (Version 3)
Quarter: 2016Q1

REPORT INFORMATION
  Report Type: Spontaneous
  Country: BR (occurrence: BR)
  Receive Date: 20151117
  Receipt Date: 20160211
  Transmission Date: 20160525
  Serious: Yes (Other)
  Sender: FDA-Public Use
  Company Number: BR-JNJFOC-20151114078

PATIENT
  Sex: Female

DRUGS (1)
  1. SIMPONI [Suspect]
     Active Substance: GOLIMUMAB
     Indication: RHEUMATOID ARTHRITIS
     Route: 058

REACTIONS (6)
  - Drug ineffective [Unknown]
  - Foot deformity [Unknown]
  - Cardiovascular disorder [Unknown]
  - Arthralgia [Unknown]
  - Surgery [Unknown]
  - Knee operation [Unknown]

NARRATIVE: CASE EVENT DATE: 2013
